FAERS Safety Report 21565746 (Version 1)
Quarter: 2022Q4

REPORT INFORMATION
  Report Type: Spontaneous
  Country: US (occurrence: US)
  Receive Date: 20221108
  Receipt Date: 20221108
  Transmission Date: 20230113
  Serious: No
  Sender: FDA-Public Use
  Company Number: US-OYSTER POINT PHARMA, INC-US-OYS-22-001048

PATIENT
  Age: 80 Year
  Sex: Female

DRUGS (1)
  1. TYRVAYA [Suspect]
     Active Substance: VARENICLINE TARTRATE
     Indication: Product used for unknown indication
     Dosage: UNKNOWN
     Route: 045
     Dates: start: 20220620, end: 2022

REACTIONS (2)
  - Blepharospasm [Recovered/Resolved]
  - Eyelid cyst [Recovered/Resolved]

NARRATIVE: CASE EVENT DATE: 20220101
